FAERS Safety Report 12754323 (Version 1)
Quarter: 2016Q3

REPORT INFORMATION
  Report Type: Spontaneous
  Country: US (occurrence: US)
  Receive Date: 20160915
  Receipt Date: 20160915
  Transmission Date: 20161109
  Serious: No
  Sender: FDA-Public Use
  Company Number: US-ASTELLAS-2015US047228

PATIENT
  Age: 62 Year
  Sex: Male

DRUGS (4)
  1. XTANDI [Suspect]
     Active Substance: ENZALUTAMIDE
     Dosage: 160 MG (4 X 40 MG), ONCE DAILY
     Route: 065
     Dates: end: 20151216
  2. XTANDI [Suspect]
     Active Substance: ENZALUTAMIDE
     Indication: PROSTATE CANCER METASTATIC
     Dosage: 160 MG  (4X40 MG), ONCE DAILY
     Route: 065
     Dates: start: 201504
  3. XTANDI [Suspect]
     Active Substance: ENZALUTAMIDE
     Route: 065
  4. XTANDI [Suspect]
     Active Substance: ENZALUTAMIDE
     Dosage: 120 MG (3 X 40 MG), UNKNOWN FREQ.
     Route: 065

REACTIONS (2)
  - Fall [Unknown]
  - Visual impairment [Unknown]
